FAERS Safety Report 14657005 (Version 1)
Quarter: 2018Q1

REPORT INFORMATION
  Report Type: Spontaneous
  Country: US (occurrence: US)
  Receive Date: 20180319
  Receipt Date: 20180319
  Transmission Date: 20180509
  Serious: No
  Sender: FDA-Public Use
  Company Number: US-SA-2018SA019600

PATIENT
  Age: 76 Year
  Sex: Female

DRUGS (6)
  1. ATORVASTATIN [Suspect]
     Active Substance: ATORVASTATIN
     Route: 048
  2. NASACORT ALLERGY 24HR [Suspect]
     Active Substance: TRIAMCINOLONE ACETONIDE
     Indication: HYPERSENSITIVITY
     Dosage: 1 SPRAY EACH NOSTRIL
     Route: 045
     Dates: start: 20180116
  3. PAROXETINE. [Suspect]
     Active Substance: PAROXETINE
     Route: 048
  4. METOPROLOL. [Suspect]
     Active Substance: METOPROLOL
     Indication: BLOOD PRESSURE MEASUREMENT
     Route: 048
  5. METOPROLOL. [Suspect]
     Active Substance: METOPROLOL
     Indication: BLOOD PRESSURE MEASUREMENT
     Route: 048
  6. TRAZODONE [Suspect]
     Active Substance: TRAZODONE HYDROCHLORIDE
     Route: 065

REACTIONS (2)
  - Euphoric mood [Not Recovered/Not Resolved]
  - Impaired driving ability [Not Recovered/Not Resolved]
